FAERS Safety Report 19703009 (Version 1)
Quarter: 2021Q3

REPORT INFORMATION
  Report Type: Spontaneous
  Country: NL (occurrence: NL)
  Receive Date: 20210816
  Receipt Date: 20210816
  Transmission Date: 20211014
  Serious: No
  Sender: FDA-Public Use
  Company Number: NL-JNJFOC-20210826162

PATIENT
  Age: 48 Year
  Sex: Male
  Weight: 78 kg

DRUGS (2)
  1. CONCERTA [Suspect]
     Active Substance: METHYLPHENIDATE HYDROCHLORIDE
     Indication: ATTENTION DEFICIT HYPERACTIVITY DISORDER
     Dosage: 1XDAAGS
     Route: 065
     Dates: start: 2021
  2. ROSUVASTATINE TABLET 10MG / BRAND NAME NOT SPECIFIED [Concomitant]
     Active Substance: ROSUVASTATIN

REACTIONS (2)
  - Therapeutic response unexpected [Unknown]
  - Priapism [Not Recovered/Not Resolved]

NARRATIVE: CASE EVENT DATE: 20210803
